FAERS Safety Report 5105694-3 (Version None)
Quarter: 2006Q3

REPORT INFORMATION
  Report Type: 
  Country: None (occurrence: None)
  Receive Date: 20060915
  Receipt Date: 20060829
  Transmission Date: 20061208
  Serious: Yes (Other)
  Sender: FDA-Public Use
  Company Number: JP-MERCK-0609USA00583

PATIENT
  Age: 24 Year
  Sex: Female
  Weight: 58 kg

DRUGS (6)
  1. FOSAMAX [Suspect]
     Indication: OSTEOPOROSIS PROPHYLAXIS
     Route: 048
     Dates: start: 20060802
  2. PREDNISOLONE [Concomitant]
     Indication: SYSTEMIC LUPUS ERYTHEMATOSUS
     Route: 065
     Dates: start: 20060802
  3. BACTRIM [Suspect]
     Indication: INFECTION PROPHYLAXIS
     Route: 048
     Dates: start: 20060802
  4. TAKEPRON [Concomitant]
     Route: 048
     Dates: start: 20060802
  5. FLUCONAZOLE [Concomitant]
     Indication: INFECTION PROPHYLAXIS
     Route: 048
     Dates: start: 20060802
  6. MAGNESIUM OXIDE [Concomitant]
     Indication: CONSTIPATION
     Route: 048
     Dates: start: 20060820

REACTIONS (2)
  - DEPRESSIVE SYMPTOM [None]
  - SOMNOLENCE [None]
